FAERS Safety Report 18313247 (Version 1)
Quarter: 2020Q3

REPORT INFORMATION
  Report Type: Report from Study
  Country: GB (occurrence: GB)
  Receive Date: 20200925
  Receipt Date: 20200925
  Transmission Date: 20201103
  Serious: Yes (Other)
  Sender: FDA-Public Use
  Company Number: GB-MYLANLABS-2020M1080986

PATIENT
  Sex: Female

DRUGS (1)
  1. BRABIO [Suspect]
     Active Substance: GLATIRAMER ACETATE
     Indication: MULTIPLE SCLEROSIS
     Dosage: 40 MILLIGRAM, THREE TIMES A WEEK
     Route: 058
     Dates: start: 20200717, end: 20200907

REACTIONS (11)
  - Rectal haemorrhage [Unknown]
  - Injection site rash [Unknown]
  - Injection site inflammation [Unknown]
  - Chest discomfort [Unknown]
  - Pruritus [Unknown]
  - Dyspnoea [Unknown]
  - Chest pain [Unknown]
  - Throat tightness [Unknown]
  - Injection site mass [Unknown]
  - Injection site injury [Unknown]
  - Mass [Unknown]
